FAERS Safety Report 20006334 (Version 3)
Quarter: 2022Q1

REPORT INFORMATION
  Report Type: Report from Study
  Country: BE (occurrence: BE)
  Receive Date: 20211028
  Receipt Date: 20220120
  Transmission Date: 20220423
  Serious: Yes (Other)
  Sender: FDA-Public Use
  Company Number: BE-ABBVIE-21K-013-3717959-00

PATIENT
  Age: 90 Year
  Sex: Female
  Weight: 49 kg

DRUGS (14)
  1. CARBIDOPA\LEVODOPA [Suspect]
     Active Substance: CARBIDOPA\LEVODOPA
     Indication: Parkinson^s disease
     Dosage: UNKNOWN DOSAGES
     Route: 050
     Dates: start: 20121015
  2. CARBIDOPA\LEVODOPA [Suspect]
     Active Substance: CARBIDOPA\LEVODOPA
     Dosage: MD= 2.5 ML, CD= 1.5 ML/HR DURING 16HRS, ED= 1.3 ML
     Route: 050
     Dates: end: 20201229
  3. CARBIDOPA\LEVODOPA [Suspect]
     Active Substance: CARBIDOPA\LEVODOPA
     Dosage: MD= 2.5 ML, CD= 1.3 ML/HR DURING 16HRS, ED= 1.3 ML
     Route: 050
     Dates: start: 20201229, end: 20210111
  4. CARBIDOPA\LEVODOPA [Suspect]
     Active Substance: CARBIDOPA\LEVODOPA
     Dosage: MD= 2.5 ML, CD= 1.4 ML/HR DURING 16HRS, ED= 1.3 ML
     Route: 050
     Dates: start: 20210111, end: 20210806
  5. CARBIDOPA\LEVODOPA [Suspect]
     Active Substance: CARBIDOPA\LEVODOPA
     Dosage: MD 2.5 ML; CD 1.7 ML/HR DURING 16 HOURS; ED 1.5 ML
     Route: 050
     Dates: start: 20210806, end: 20220114
  6. CARBIDOPA\LEVODOPA [Suspect]
     Active Substance: CARBIDOPA\LEVODOPA
     Dosage: MD 3.0 ML; CD 1.7 ML/HR DURING 16 HOURS; ED 2.0 ML
     Route: 050
     Dates: start: 20220114
  7. ALPRAZOLAM [Concomitant]
     Active Substance: ALPRAZOLAM
     Indication: Product used for unknown indication
  8. AMANTADINE [Concomitant]
     Active Substance: AMANTADINE
     Indication: Parkinson^s disease
     Route: 048
  9. ASPIRIN [Concomitant]
     Active Substance: ASPIRIN
     Indication: Product used for unknown indication
  10. FERROGUARD [Concomitant]
     Indication: Product used for unknown indication
  11. LEVOTHYROXINE [Concomitant]
     Active Substance: LEVOTHYROXINE
     Indication: Product used for unknown indication
  12. OMEPRAZOLE [Concomitant]
     Active Substance: OMEPRAZOLE
     Indication: Product used for unknown indication
  13. STRONTIUM RANELATE [Concomitant]
     Active Substance: STRONTIUM RANELATE
     Indication: Product used for unknown indication
     Dosage: FORM OF ADMINISTRATION: SACHET - ON AN EMPTY STOMACH
  14. LERCANIDIPINE HYDROCHLORIDE [Concomitant]
     Active Substance: LERCANIDIPINE HYDROCHLORIDE
     Indication: Product used for unknown indication

REACTIONS (7)
  - Seizure [Unknown]
  - Fatigue [Unknown]
  - Freezing phenomenon [Not Recovered/Not Resolved]
  - Dyskinesia [Not Recovered/Not Resolved]
  - Anxiety [Unknown]
  - Therapeutic product effect incomplete [Unknown]
  - Parkinson^s disease [Unknown]
